FAERS Safety Report 18284984 (Version 1)
Quarter: 2020Q3

REPORT INFORMATION
  Report Type: Report from Study
  Country: US (occurrence: US)
  Receive Date: 20200918
  Receipt Date: 20200918
  Transmission Date: 20201103
  Serious: Yes (Death)
  Sender: FDA-Public Use
  Company Number: US-JNJFOC-A-NJ2020-208283

PATIENT
  Age: 62 Year
  Sex: Male

DRUGS (2)
  1. UPTRAVI [Suspect]
     Active Substance: SELEXIPAG
     Indication: PULMONARY ARTERIAL HYPERTENSION
     Dosage: 200 MCG, BID
     Route: 048
     Dates: start: 20200709, end: 20200720
  2. OXYGEN. [Concomitant]
     Active Substance: OXYGEN
     Indication: DYSPNOEA AT REST

REACTIONS (7)
  - Pulmonary arterial hypertension [Fatal]
  - End stage renal disease [Fatal]
  - Diarrhoea [Unknown]
  - Vomiting [Unknown]
  - Illness [Unknown]
  - Nausea [Unknown]
  - Adverse event [Unknown]

NARRATIVE: CASE EVENT DATE: 202007
